FAERS Safety Report 18641708 (Version 1)
Quarter: 2020Q4

REPORT INFORMATION
  Report Type: Spontaneous
  Country: US (occurrence: US)
  Receive Date: 20201218
  Receipt Date: 20201218
  Transmission Date: 20210114
  Serious: No
  Sender: FDA-Public Use
  Company Number: None

PATIENT
  Sex: Female

DRUGS (2)
  1. XALKORI [Suspect]
     Active Substance: CRIZOTINIB
     Indication: LUNG NEOPLASM MALIGNANT
     Route: 048
     Dates: start: 20200803, end: 20201028
  2. XALKORI [Suspect]
     Active Substance: CRIZOTINIB
     Indication: GASTROINTESTINAL INFLAMMATION
     Route: 048
     Dates: start: 20200803, end: 20201028

REACTIONS (4)
  - Electrocardiogram QT prolonged [None]
  - Syncope [None]
  - Therapy interrupted [None]
  - Drug intolerance [None]
